FAERS Safety Report 20039196 (Version 2)
Quarter: 2022Q1

REPORT INFORMATION
  Report Type: Spontaneous
  Country: JP (occurrence: JP)
  Receive Date: 20211105
  Receipt Date: 20220128
  Transmission Date: 20220423
  Serious: Yes (Death, Hospitalization)
  Sender: FDA-Public Use
  Company Number: JP-BAYER-2021A231714

PATIENT
  Age: 73 Year
  Sex: Female
  Weight: 60 kg

DRUGS (15)
  1. STIVARGA [Suspect]
     Active Substance: REGORAFENIB
     Indication: Colon cancer
     Dosage: 3 DF, QD
     Route: 048
     Dates: start: 20210727, end: 20210920
  2. FAMOTIDINE D EMEC [Concomitant]
     Dosage: DAILY DOSE 40 MG
     Route: 048
     Dates: start: 20180710, end: 20211016
  3. MIYA-BM [Concomitant]
     Active Substance: CLOSTRIDIUM BUTYRICUM SPORES STRAIN M-55
     Dosage: DAILY DOSE 3 DF
     Route: 048
     Dates: start: 20200519, end: 20211011
  4. URSODIOL [Concomitant]
     Active Substance: URSODIOL
     Dosage: DAILY DOSE 300 MG
     Route: 048
     Dates: start: 20210921, end: 20211003
  5. ASPIRIN [Concomitant]
     Active Substance: ASPIRIN
     Dosage: DAILY DOSE 100 MG
     Route: 048
     Dates: start: 20211013, end: 20211016
  6. CLOPIDOGREL [Concomitant]
     Active Substance: CLOPIDOGREL BISULFATE
     Dosage: DAILY DOSE 600 MG
     Route: 048
     Dates: start: 20111013, end: 20211011
  7. ENALAPRIL MALEATE [Concomitant]
     Active Substance: ENALAPRIL MALEATE
     Dosage: UNK
     Route: 048
     Dates: start: 20111013, end: 20211011
  8. FUROSEMIDE [Concomitant]
     Active Substance: FUROSEMIDE
     Dosage: DAILY DOSE 20 MG
     Route: 048
     Dates: start: 20111013, end: 20211016
  9. BISOPROLOL FUMARATE [Concomitant]
     Active Substance: BISOPROLOL FUMARATE
     Dosage: DAILY DOSE 10 MG
     Route: 048
     Dates: start: 20111013, end: 20211011
  10. ROSUVASTATIN CALCIUM [Concomitant]
     Active Substance: ROSUVASTATIN CALCIUM
     Dosage: DAILY DOSE 5 MG
     Route: 048
     Dates: start: 20111013, end: 20211011
  11. MAGNESIUM OXIDE [Concomitant]
     Active Substance: MAGNESIUM OXIDE
     Dosage: DAILY DOSE 990 MG
     Route: 048
     Dates: start: 20211008, end: 20211016
  12. CALCIUM CHLORIDE\POTASSIUM CHLORIDE\SODIUM ACETATE\SODIUM CHLORIDE [Concomitant]
     Active Substance: CALCIUM CHLORIDE\POTASSIUM CHLORIDE\SODIUM ACETATE\SODIUM CHLORIDE
     Dosage: UNK
     Route: 042
     Dates: start: 20210928, end: 20210928
  13. YD SOLITA T NO.3 [Concomitant]
     Dosage: UNK
     Route: 042
     Dates: start: 20210928, end: 20211016
  14. VEEN D [Concomitant]
     Active Substance: CALCIUM CHLORIDE\DEXTROSE\POTASSIUM CHLORIDE\SODIUM ACETATE\SODIUM CHLORIDE
     Dosage: UNK
     Route: 042
     Dates: start: 20211001, end: 20211002
  15. SODIUM GUALENATE MONOHYDRATE [Concomitant]
     Active Substance: SODIUM GUALENATE MONOHYDRATE
     Dosage: APPROPRIATE AMOUNT
     Dates: start: 20200218, end: 20211011

REACTIONS (21)
  - Drug hypersensitivity [Fatal]
  - Liver disorder [Fatal]
  - Disseminated intravascular coagulation [Fatal]
  - Hepatic encephalopathy [Fatal]
  - Off label use [None]
  - Hepatic function abnormal [Fatal]
  - Jaundice [Fatal]
  - Blood bilirubin increased [Fatal]
  - Blood sodium decreased [Fatal]
  - Blood potassium decreased [Fatal]
  - Blood magnesium decreased [Fatal]
  - Platelet count decreased [Fatal]
  - International normalised ratio increased [Fatal]
  - Hyperammonaemia [Fatal]
  - Melaena [Fatal]
  - Blood pressure decreased [Fatal]
  - Coma [Fatal]
  - Cardiac arrest [Fatal]
  - Respiratory arrest [Fatal]
  - Mydriasis [Fatal]
  - Pupillary reflex impaired [Fatal]

NARRATIVE: CASE EVENT DATE: 20210727
